FAERS Safety Report 12007348 (Version 3)
Quarter: 2016Q2

REPORT INFORMATION
  Report Type: Spontaneous
  Country: DE (occurrence: DE)
  Receive Date: 20160204
  Receipt Date: 20160419
  Transmission Date: 20160815
  Serious: Yes (Disabling, Other)
  Sender: FDA-Public Use
  Company Number: DE-BAXTER-2016BAX000071

PATIENT
  Sex: Female
  Weight: 62 kg

DRUGS (26)
  1. ENDOXAN 1G [Suspect]
     Active Substance: CYCLOPHOSPHAMIDE
     Indication: POLYMYOSITIS
     Dosage: 1ST CYCLE
     Route: 040
     Dates: start: 20151017
  2. ENDOXAN 1G [Suspect]
     Active Substance: CYCLOPHOSPHAMIDE
     Indication: COMPUTERISED TOMOGRAM ABNORMAL
     Dosage: 3RD CYCLE
     Route: 065
     Dates: start: 20151209
  3. L-TYROSINE [Concomitant]
     Indication: PRODUCT USED FOR UNKNOWN INDICATION
     Dosage: 1 CAPSULE, STARTED ON APPROX. 07DEC2015
     Route: 065
     Dates: end: 20160117
  4. ENDOXAN 1G [Suspect]
     Active Substance: CYCLOPHOSPHAMIDE
     Indication: OFF LABEL USE
  5. DECORTIN [Suspect]
     Active Substance: PREDNISONE
     Indication: PRODUCT USED FOR UNKNOWN INDICATION
     Dosage: 3 CYCLES (2 IN HOSPITAL AND THIRD AMBULATORY)
     Route: 065
  6. PREDNISOLON [Concomitant]
     Active Substance: PREDNISOLONE
     Indication: PRODUCT USED FOR UNKNOWN INDICATION
     Route: 065
     Dates: start: 20151230, end: 20160120
  7. DEKRISTOL [Concomitant]
     Active Substance: CHOLECALCIFEROL
     Indication: PRODUCT USED FOR UNKNOWN INDICATION
     Dosage: 20000 (UNITS NOT REPORTED), 2 CAPSULES
     Route: 065
  8. BUFFERED VITAMINE C [Concomitant]
     Indication: DETOXIFICATION
     Dosage: 2 TO 3 TIMES DAILY
     Route: 065
  9. ACC AKUT [Concomitant]
     Active Substance: ACETYLCYSTEINE
     Indication: PROPHYLAXIS
     Dosage: 1 TO 2 TIMES DAILY
     Route: 065
  10. COTRIM [Concomitant]
     Active Substance: SULFAMETHOXAZOLE\TRIMETHOPRIM
     Indication: PRODUCT USED FOR UNKNOWN INDICATION
     Dosage: 0-0-1 ON MONDAY, WEDNESDAY AND FRIDAY
     Route: 065
  11. MESNA FOR INJECTION - 3 GRAM [Suspect]
     Active Substance: MESNA
     Indication: PROPHYLAXIS
     Dosage: 400 (UNITS NOT REPORTED) WHILE CYCLOPHOSPHAMIDE INFUSION, 400 FOUR HOURS AFTER INFUSION AND 400 EIGH
     Route: 065
  12. ENDOXAN 1G [Suspect]
     Active Substance: CYCLOPHOSPHAMIDE
     Indication: LUNG DISORDER
     Dosage: 2ND CYCLE
     Route: 065
     Dates: start: 20151112
  13. VITAMIN D [Concomitant]
     Active Substance: CHOLECALCIFEROL
     Indication: PRODUCT USED FOR UNKNOWN INDICATION
     Dosage: 1 CAPSULE, STARTED ON APPROX. 07DEC2015
     Route: 065
     Dates: end: 20160117
  14. L-CARNITIN [Concomitant]
     Indication: DETOXIFICATION
     Route: 065
  15. SELEN [Concomitant]
     Active Substance: SELENIUM
     Indication: DETOXIFICATION
     Dosage: SOMETIMES
     Route: 065
  16. PANTOZOL [Concomitant]
     Active Substance: PANTOPRAZOLE SODIUM
     Indication: PRODUCT USED FOR UNKNOWN INDICATION
     Dosage: 1-0-0
     Route: 065
  17. VITAMIN D3 [Concomitant]
     Active Substance: CHOLECALCIFEROL
     Indication: PRODUCT USED FOR UNKNOWN INDICATION
     Dosage: 1-0-0
     Route: 065
  18. ENDOXAN 1G [Suspect]
     Active Substance: CYCLOPHOSPHAMIDE
     Indication: POLYARTHRITIS
     Dosage: 4TH CYCLE
     Route: 042
     Dates: start: 20160113
  19. ENDOXAN 1G [Suspect]
     Active Substance: CYCLOPHOSPHAMIDE
     Indication: MYOSITIS
  20. OMEPRAZOL [Concomitant]
     Active Substance: OMEPRAZOLE
     Indication: PRODUCT USED FOR UNKNOWN INDICATION
     Route: 065
     Dates: start: 20151218, end: 20160120
  21. OMEPRAZOL [Concomitant]
     Active Substance: OMEPRAZOLE
     Dosage: PERORAL CONTINUOUS
     Route: 048
  22. PREDNISOLON [Concomitant]
     Active Substance: PREDNISOLONE
     Dosage: 1-0-0, IN FURTHER COURSE REDUCE GRADUALLY
     Route: 065
  23. PREDNISOLON [Concomitant]
     Active Substance: PREDNISOLONE
     Dosage: PERORAL CONTINUOUS
     Route: 048
  24. KELP [Concomitant]
     Active Substance: KELP
     Indication: PRODUCT USED FOR UNKNOWN INDICATION
     Dosage: 1 CAPSULE, STARTED ON APPROX. 07DEC2015
     Route: 065
     Dates: end: 20160117
  25. MSM [Concomitant]
     Active Substance: DIMETHYL SULFONE
     Indication: DETOXIFICATION
     Route: 065
  26. L-THYROXIN [Concomitant]
     Active Substance: LEVOTHYROXINE SODIUM
     Indication: PRODUCT USED FOR UNKNOWN INDICATION
     Dosage: 1-0-0
     Route: 065

REACTIONS (46)
  - Sensory disturbance [Unknown]
  - Night sweats [Recovered/Resolved]
  - Musculoskeletal stiffness [Recovered/Resolved]
  - Peripheral swelling [Unknown]
  - Cardiac discomfort [Unknown]
  - Arthropathy [Unknown]
  - Oropharyngeal pain [Unknown]
  - Palpitations [Unknown]
  - Headache [Unknown]
  - Fatigue [Unknown]
  - Arthralgia [Unknown]
  - Sensory disturbance [Recovered/Resolved with Sequelae]
  - Cardiac disorder [Unknown]
  - Respiratory rate increased [Unknown]
  - Feeling abnormal [Unknown]
  - Gingival bleeding [Unknown]
  - Pain in extremity [Not Recovered/Not Resolved]
  - Hypoaesthesia [Unknown]
  - Alopecia [Unknown]
  - Amenorrhoea [Unknown]
  - Abdominal pain upper [Unknown]
  - Muscular weakness [Unknown]
  - Bladder pain [Unknown]
  - Skin hypertrophy [Unknown]
  - Infusion site hypoaesthesia [Unknown]
  - Paraesthesia [Not Recovered/Not Resolved]
  - Swelling face [Unknown]
  - Polyneuropathy [Unknown]
  - Limb discomfort [Unknown]
  - Restlessness [Unknown]
  - Skin fissures [Unknown]
  - Muscular weakness [Recovered/Resolved]
  - Dysgeusia [Unknown]
  - Diarrhoea [Recovered/Resolved]
  - Feeling hot [Unknown]
  - Aphthous ulcer [Unknown]
  - Erythema [Unknown]
  - Asthenia [Unknown]
  - Hyperhidrosis [Unknown]
  - Chest pain [Unknown]
  - Angina pectoris [Unknown]
  - Ear pain [Unknown]
  - Drug tolerance decreased [Unknown]
  - Heart rate abnormal [Unknown]
  - Pruritus [Unknown]
  - Nausea [Unknown]
